FAERS Safety Report 20545529 (Version 2)
Quarter: 2022Q1

REPORT INFORMATION
  Report Type: Report from Study
  Country: CA (occurrence: CA)
  Receive Date: 20220303
  Receipt Date: 20220307
  Transmission Date: 20220423
  Serious: Yes (Other)
  Sender: FDA-Public Use
  Company Number: CA-NOVARTISPH-NVSC2021CA238048

PATIENT
  Age: 75 Year
  Sex: Male

DRUGS (2)
  1. ERELZI [Suspect]
     Active Substance: ETANERCEPT-SZZS
     Indication: Rheumatoid arthritis
     Dosage: 50 MG, QW
     Route: 058
     Dates: start: 20210712
  2. SULFASALAZINE [Concomitant]
     Active Substance: SULFASALAZINE
     Indication: Product used for unknown indication
     Dosage: UNK
     Route: 065

REACTIONS (10)
  - Pancytopenia [Unknown]
  - Hepatic cirrhosis [Unknown]
  - Pain in extremity [Unknown]
  - Oedema peripheral [Unknown]
  - Limb discomfort [Unknown]
  - Gait disturbance [Unknown]
  - Arthralgia [Unknown]
  - Drug intolerance [Unknown]
  - Contraindicated product administered [Unknown]
  - Treatment failure [Unknown]

NARRATIVE: CASE EVENT DATE: 20220222
